FAERS Safety Report 6388157-7 (Version None)
Quarter: 2009Q3

REPORT INFORMATION
  Report Type: 
  Country: None (occurrence: None)
  Receive Date: 20090930
  Receipt Date: 20090921
  Transmission Date: 20100115
  Serious: Yes (Other)
  Sender: FDA-Public Use
  Company Number: GXKR2009FR10477

PATIENT
  Age: 53 Year
  Sex: Female

DRUGS (5)
  1. ATENOLOL [Suspect]
     Indication: PALPITATIONS
     Dates: end: 20070701
  2. ATENOLOL [Suspect]
     Indication: PALPITATIONS
     Dates: start: 20070901, end: 20070901
  3. ATENOLOL [Suspect]
     Indication: PALPITATIONS
     Dates: start: 20070101
  4. INSULIN (INSULIN) [Concomitant]
  5. FOSINOPRIL SODIUM [Concomitant]

REACTIONS (3)
  - BLOOD CREATININE INCREASED [None]
  - HYPERKALAEMIA [None]
  - HYPERKALIURIA [None]
